FAERS Safety Report 4280166-7 (Version None)
Quarter: 2004Q1

REPORT INFORMATION
  Report Type: 
  Country: None (occurrence: None)
  Receive Date: 20040126
  Receipt Date: 20030630
  Transmission Date: 20041129
  Serious: No
  Sender: FDA-Public Use
  Company Number: 2000-BP-00389

PATIENT
  Age: 45 Year
  Sex: Female
  Weight: 113 kg

DRUGS (4)
  1. MICARDIS [Suspect]
     Indication: HYPERTENSION
     Dosage: 40 MG, (1 TAB PO QD), PO
     Route: 048
     Dates: start: 20000303, end: 20000307
  2. SYNTHROID [Concomitant]
  3. PAXIL [Concomitant]
  4. PRILOSEC [Concomitant]

REACTIONS (10)
  - ALANINE AMINOTRANSFERASE INCREASED [None]
  - ANXIETY [None]
  - ASPARTATE AMINOTRANSFERASE INCREASED [None]
  - BLOOD GLUCOSE INCREASED [None]
  - BLOOD PRESSURE INCREASED [None]
  - CHEST DISCOMFORT [None]
  - DIZZINESS [None]
  - EATING DISORDER [None]
  - LIPIDS INCREASED [None]
  - NAUSEA [None]
